FAERS Safety Report 15929223 (Version 1)
Quarter: 2019Q1

REPORT INFORMATION
  Report Type: Report from Study
  Country: None (occurrence: IN)
  Receive Date: 20190206
  Receipt Date: 20190206
  Transmission Date: 20190417
  Serious: Yes (Other)
  Sender: FDA-Public Use
  Company Number: IN-BAUSCH-BL-2019-003188

PATIENT
  Age: 20 Year
  Sex: Male

DRUGS (12)
  1. OFLOXACIN. [Suspect]
     Active Substance: OFLOXACIN
     Dosage: MAINTENANCE PHASE
     Route: 065
  2. CLOFAZIMINE [Suspect]
     Active Substance: CLOFAZIMINE
     Indication: TYPE 2 LEPRA REACTION
     Dosage: MAINTENANCE PHASE
     Route: 065
  3. HYDROXYCHLOROQUINE [Concomitant]
     Active Substance: HYDROXYCHLOROQUINE
     Indication: TYPE 2 LEPRA REACTION
     Dosage: FOR VARIABLE DURATIONS
  4. PREDNISOLONE. [Suspect]
     Active Substance: PREDNISOLONE
     Indication: TYPE 2 LEPRA REACTION
     Dosage: MULTIPLE COURSES (MEAN DOSE OF 12.882.5 PLUS OR MINUS 5.130.3 MG)
     Route: 065
  5. OFLOXACIN. [Suspect]
     Active Substance: OFLOXACIN
     Indication: BORDERLINE LEPROSY
     Dosage: INTENSIVE PHASE
     Route: 065
  6. COLCHICINE. [Concomitant]
     Active Substance: COLCHICINE
     Indication: TYPE 2 LEPRA REACTION
     Dosage: FOR VARIABLE DURATIONS
  7. PENTOXIFYLLINE. [Concomitant]
     Active Substance: PENTOXIFYLLINE
     Indication: TYPE 2 LEPRA REACTION
     Dosage: FOR VARIABLE DURATIONS
  8. MINOCYCLINE [Suspect]
     Active Substance: MINOCYCLINE\MINOCYCLINE HYDROCHLORIDE
     Indication: BORDERLINE LEPROSY
     Route: 065
  9. CLOFAZIMINE [Suspect]
     Active Substance: CLOFAZIMINE
     Indication: BORDERLINE LEPROSY
     Dosage: INTENSIVE PHASE
     Route: 065
  10. CLOFAZIMINE [Suspect]
     Active Substance: CLOFAZIMINE
     Route: 065
  11. AZATHIOPRINE. [Concomitant]
     Active Substance: AZATHIOPRINE
     Indication: TYPE 2 LEPRA REACTION
     Dosage: 100-150 MG/DAY FOR VARIABLE DURATIONS
  12. PREDNISOLONE. [Suspect]
     Active Substance: PREDNISOLONE
     Dosage: TAPERED OFF WITHIN 6-12 MONTHS (2.505 PLUS OR MINUS 614 MG)
     Route: 065

REACTIONS (5)
  - Type 2 lepra reaction [Recovered/Resolved]
  - Infection [Recovered/Resolved]
  - Drug dependence [Unknown]
  - Skin hyperpigmentation [Unknown]
  - Therapeutic response decreased [Recovered/Resolved]
